FAERS Safety Report 9192566 (Version 1)
Quarter: 2013Q1

REPORT INFORMATION
  Report Type: Spontaneous
  Country: US (occurrence: None)
  Receive Date: 20120703
  Receipt Date: 20120703
  Transmission Date: 20140127
  Serious: No
  Sender: FDA-Public Use
  Company Number: PHEH2012US005300

PATIENT
  Age: 51 Year
  Sex: Female

DRUGS (3)
  1. GILENYA [Suspect]
     Route: 048
     Dates: start: 20120306, end: 20120306
  2. PROZAC (FLUOXETINE HYDROCHLORIDE) [Concomitant]
  3. ZANAFLEX (TIZANIDINE HYDROCHLORIDE) [Concomitant]

REACTIONS (2)
  - Nervousness [None]
  - Fatigue [None]
